FAERS Safety Report 5357419-4 (Version None)
Quarter: 2007Q2

REPORT INFORMATION
  Report Type: 
  Country: None (occurrence: None)
  Receive Date: 20070614
  Receipt Date: 20070604
  Transmission Date: 20071010
  Serious: Yes (Hospitalization)
  Sender: FDA-Public Use
  Company Number: HQWYE479404JUN07

PATIENT
  Age: 82 Year
  Sex: Male

DRUGS (2)
  1. AMIODARONE HCL [Suspect]
     Indication: ATRIAL FLUTTER
     Route: 048
     Dates: start: 20050501
  2. AMIODARONE HCL [Suspect]
     Indication: ACUTE CORONARY SYNDROME

REACTIONS (3)
  - HYPOTENSION [None]
  - INTERSTITIAL LUNG DISEASE [None]
  - LETHARGY [None]
